FAERS Safety Report 9099445 (Version 1)
Quarter: 2013Q1

REPORT INFORMATION
  Report Type: Spontaneous
  Country: US (occurrence: US)
  Receive Date: 20130214
  Receipt Date: 20130214
  Transmission Date: 20140127
  Serious: Yes (Other)
  Sender: FDA-Public Use
  Company Number: US-BRISTOL-MYERS SQUIBB COMPANY-17352758

PATIENT
  Age: 74 Year
  Sex: Male

DRUGS (6)
  1. ERBITUX [Suspect]
     Indication: HEAD AND NECK CANCER
     Dosage: NO OF TREATMENT: 3
  2. CARBOPLATIN [Suspect]
     Indication: HEAD AND NECK CANCER
  3. ATENOLOL [Concomitant]
  4. ZOCOR [Concomitant]
  5. MULTIVITAMIN [Concomitant]
  6. BABY ASPIRIN [Concomitant]

REACTIONS (4)
  - Diverticulitis [Unknown]
  - Rash pruritic [Unknown]
  - Proctalgia [Unknown]
  - Decreased appetite [Unknown]
